FAERS Safety Report 15671713 (Version 1)
Quarter: 2018Q4

REPORT INFORMATION
  Report Type: Report from Study
  Country: US (occurrence: US)
  Receive Date: 20181129
  Receipt Date: 20181129
  Transmission Date: 20190205
  Serious: No
  Sender: FDA-Public Use
  Company Number: US-TESARO-US-2018TSO04061

PATIENT
  Age: 64 Year
  Sex: Female

DRUGS (1)
  1. ZEJULA [Suspect]
     Active Substance: NIRAPARIB
     Indication: MALIGNANT PERITONEAL NEOPLASM
     Dosage: 200 MG, QD, IN THE MORNING BEFORE BREAKFAST
     Route: 048
     Dates: start: 20180726

REACTIONS (6)
  - Proctalgia [Unknown]
  - Intentional underdose [Not Recovered/Not Resolved]
  - Frequent bowel movements [Unknown]
  - Genital pain [Unknown]
  - Constipation [Unknown]
  - Contusion [Unknown]

NARRATIVE: CASE EVENT DATE: 20180726
